FAERS Safety Report 5025840-X (Version None)
Quarter: 2006Q2

REPORT INFORMATION
  Report Type: 
  Country: None (occurrence: None)
  Receive Date: 20060614
  Receipt Date: 20060525
  Transmission Date: 20061013
  Serious: Yes (Life-Threatening)
  Sender: FDA-Public Use
  Company Number: AU-SANOFI-SYNTHELABO-A01200603942

PATIENT
  Sex: Female

DRUGS (5)
  1. LEUCOVORIN CALCIUM [Concomitant]
     Route: 042
     Dates: start: 20060523
  2. FLUOROURACIL [Concomitant]
     Route: 042
     Dates: start: 20060523
  3. GLUTAMINE [Concomitant]
     Dosage: 3 TABS DAILY
     Route: 048
     Dates: start: 20060509
  4. WARFARIN SODIUM [Concomitant]
     Route: 048
     Dates: start: 20060503
  5. ELOXATIN [Suspect]
     Route: 042
     Dates: start: 20060523, end: 20060523

REACTIONS (2)
  - CIRCULATORY COLLAPSE [None]
  - LARYNGOSPASM [None]
